FAERS Safety Report 8304120-0 (Version None)
Quarter: 2012Q2

REPORT INFORMATION
  Report Type: 
  Country: None (occurrence: None)
  Receive Date: 20120418
  Receipt Date: 20120404
  Transmission Date: 20120825
  Serious: Yes (Hospitalization)
  Sender: FDA-Public Use
  Company Number: JPI-P-020775

PATIENT
  Age: 63 Year
  Sex: Female

DRUGS (3)
  1. 14 UNSPECIFIED MEDICATIONS (UNKNOWN) [Suspect]
  2. XYREM [Suspect]
     Indication: NARCOLEPSY
     Dosage: 2 IN1  D, ORAL
     Route: 048
     Dates: start: 20101101
  3. MULTIPLE UNSPECIFIED MEDICATIONS [Concomitant]

REACTIONS (4)
  - MEMORY IMPAIRMENT [None]
  - INCORRECT DOSE ADMINISTERED [None]
  - INCOHERENT [None]
  - INITIAL INSOMNIA [None]
